FAERS Safety Report 8525965-8 (Version None)
Quarter: 2012Q3

REPORT INFORMATION
  Report Type: 
  Country: None (occurrence: None)
  Receive Date: 20120720
  Receipt Date: 20120711
  Transmission Date: 20120928
  Serious: Yes (Other)
  Sender: FDA-Public Use
  Company Number: NO-BAXTER-2012BAX011864

PATIENT
  Age: 24 Year
  Sex: Male

DRUGS (11)
  1. DOXORUBICIN HCL [Suspect]
     Dosage: 35 MG/M2 D1 Q22D (ESCALATED)
     Route: 042
  2. BLEOMYCIN BAXTER 15 000 IE LYOFILISAT TIL INJEKSJONSV?SKE/INFUSJONSV?S [Suspect]
     Dosage: 10 000IU ON DAY 8 Q22D
     Route: 042
  3. VINCRISTINE [Suspect]
     Dosage: 1.4 MG/M2 D8 Q22D
     Route: 042
  4. CYCLOPHOSPHAMIDE [Suspect]
     Dosage: 650MG/M2 D1 Q22D (STANDARD)
     Route: 042
  5. CYCLOPHOSPHAMIDE [Suspect]
     Dosage: 1250 MG/M2 D1 Q22D (ESCALATED)
     Route: 042
  6. PREDNISOLONE [Suspect]
     Dosage: 40 MG/M2 D1-14 Q22D
     Route: 048
  7. ETOPOSIDE [Suspect]
     Dosage: 100 MG/M2 D1-3 Q22D (STANDARD)
     Route: 042
  8. ETOPOSIDE [Suspect]
     Dosage: 200MG/M2 D1-3 Q22D (ESCALATED)
     Route: 042
  9. DOXORUBICIN HCL [Suspect]
     Dosage: 25 MG/M2 D1 Q22D (STANDARD)
     Route: 042
  10. TRIMETHOPRIM + SULFAMETHOXAZOLE [Concomitant]
     Indication: PROPHYLAXIS
  11. PROCARBAZINE HYDROCHLORIDE [Suspect]
     Dosage: 100 MG/M2 D1-7 Q22D
     Route: 048

REACTIONS (1)
  - OSTEONECROSIS [None]
